FAERS Safety Report 4667835-1 (Version None)
Quarter: 2005Q2

REPORT INFORMATION
  Report Type: 
  Country: None (occurrence: None)
  Receive Date: 20050520
  Receipt Date: 20050510
  Transmission Date: 20051028
  Serious: Yes (Hospitalization, Other)
  Sender: FDA-Public Use
  Company Number: FR-BRISTOL-MYERS SQUIBB COMPANY-12964276

PATIENT
  Age: 35 Year
  Sex: Female
  Weight: 60 kg

DRUGS (5)
  1. REYATAZ [Suspect]
     Indication: HIV INFECTION
     Route: 048
     Dates: start: 20040729, end: 20050324
  2. VIDEX EC [Suspect]
     Indication: HIV INFECTION
     Route: 048
     Dates: start: 20040501, end: 20050324
  3. NORVIR [Suspect]
     Indication: HIV INFECTION
     Dates: start: 20040729, end: 20050324
  4. EPIVIR [Suspect]
     Indication: HIV INFECTION
     Dates: start: 20041028, end: 20050324
  5. VIREAD [Concomitant]
     Indication: HIV INFECTION
     Dates: end: 20041028

REACTIONS (5)
  - CAESAREAN SECTION [None]
  - HYPERCHOLESTEROLAEMIA [None]
  - HYPERTRIGLYCERIDAEMIA [None]
  - PANCREATITIS [None]
  - PREGNANCY [None]
